FAERS Safety Report 25541127 (Version 3)
Quarter: 2025Q4

REPORT INFORMATION
  Report Type: Report from Study
  Country: US (occurrence: US)
  Receive Date: 20250710
  Receipt Date: 20251003
  Transmission Date: 20260118
  Serious: No
  Sender: MALLINCKRODT
  Company Number: US-MALLINCKRODT-MNK202504206

PATIENT
  Age: 67 Year
  Sex: Female

DRUGS (2)
  1. CORTICOTROPIN [Suspect]
     Active Substance: CORTICOTROPIN
     Indication: Pulmonary sarcoidosis
     Dosage: 80 UNITS
     Route: 058
     Dates: start: 20250612
  2. MYRBETRIQ [Concomitant]
     Active Substance: MIRABEGRON
     Indication: Automatic bladder
     Dosage: UNKNOWN

REACTIONS (4)
  - Weight decreased [Unknown]
  - Increased tendency to bruise [Unknown]
  - Hyperhidrosis [Not Recovered/Not Resolved]
  - Headache [Unknown]

NARRATIVE: CASE EVENT DATE: 20250101
